FAERS Safety Report 15781793 (Version 4)
Quarter: 2019Q2

REPORT INFORMATION
  Report Type: Report from Study
  Country: NL (occurrence: NL)
  Receive Date: 20190102
  Receipt Date: 20190621
  Transmission Date: 20190711
  Serious: Yes (Other)
  Sender: FDA-Public Use
  Company Number: NL-BRISTOL-MYERS SQUIBB COMPANY-BMS-2018-122940

PATIENT
  Age: 65 Year
  Sex: Female

DRUGS (1)
  1. TRIAMCINOLONE ACETONIDE. [Suspect]
     Active Substance: TRIAMCINOLONE ACETONIDE
     Indication: VISUAL FIELD TESTS
     Dosage: 20 MG/ML, UNK
     Route: 031

REACTIONS (2)
  - Intentional product use issue [Unknown]
  - Cataract [Unknown]
